FAERS Safety Report 15976909 (Version 1)
Quarter: 2019Q1

REPORT INFORMATION
  Report Type: Spontaneous
  Country: US (occurrence: US)
  Receive Date: 20190218
  Receipt Date: 20190218
  Transmission Date: 20190418
  Serious: Yes (Other)
  Sender: FDA-Public Use
  Company Number: US-ASTRAZENECA-2018SF34997

PATIENT
  Sex: Male

DRUGS (12)
  1. MAVIK [Concomitant]
     Active Substance: TRANDOLAPRIL
     Dates: start: 20041229
  2. ACETAMINOPHEN-COD [Concomitant]
     Active Substance: ACETAMINOPHEN\CODEINE PHOSPHATE
     Dates: start: 20080726
  3. PRILOSEC [Suspect]
     Active Substance: OMEPRAZOLE MAGNESIUM
     Route: 048
     Dates: start: 20040101, end: 20081231
  4. SULAR [Concomitant]
     Active Substance: NISOLDIPINE
     Dates: start: 20040210
  5. DEXILANT [Concomitant]
     Active Substance: DEXLANSOPRAZOLE
     Dosage: EVERY DAY
     Dates: start: 20120920
  6. ATENOLOL. [Concomitant]
     Active Substance: ATENOLOL
     Dates: start: 20080819
  7. METOCLOPRAMIDE. [Concomitant]
     Active Substance: METOCLOPRAMIDE
     Dates: start: 20041111
  8. CIMETIDINE [Concomitant]
     Active Substance: CIMETIDINE
     Dates: start: 20050524
  9. CRESTOR [Concomitant]
     Active Substance: ROSUVASTATIN CALCIUM
     Dosage: EVERY DAY
     Dates: start: 20120920
  10. NEXIUM [Suspect]
     Active Substance: ESOMEPRAZOLE MAGNESIUM
     Route: 048
     Dates: start: 20050317
  11. NEXIUM [Suspect]
     Active Substance: ESOMEPRAZOLE MAGNESIUM
     Route: 048
     Dates: start: 20050101, end: 20161231
  12. BENAZEPRIL [Concomitant]
     Active Substance: BENAZEPRIL HYDROCHLORIDE
     Dosage: EVERY DAY
     Dates: start: 20120920

REACTIONS (2)
  - Chronic kidney disease [Unknown]
  - Renal failure [Unknown]
